FAERS Safety Report 5164292-6 (Version None)
Quarter: 2006Q4

REPORT INFORMATION
  Report Type: 
  Country: None (occurrence: None)
  Receive Date: 20061205
  Receipt Date: 20061124
  Transmission Date: 20070319
  Serious: Yes (Other)
  Sender: FDA-Public Use
  Company Number: FR-JNJFOC-20061003442

PATIENT
  Age: 25 Year
  Sex: Female
  Weight: 50 kg

DRUGS (4)
  1. REMICADE [Suspect]
     Route: 042
  2. REMICADE [Suspect]
     Indication: CROHN'S DISEASE
     Dosage: 8TH INFUSION
     Route: 042
  3. LEDERFOLDINE [Concomitant]
     Route: 048
  4. BIOMAG [Concomitant]
     Route: 048

REACTIONS (1)
  - PSORIASIS [None]
